FAERS Safety Report 6268608-9 (Version None)
Quarter: 2009Q3

REPORT INFORMATION
  Report Type: 
  Country: None (occurrence: None)
  Receive Date: 20090715
  Receipt Date: 20090710
  Transmission Date: 20100115
  Serious: Yes (Other)
  Sender: FDA-Public Use
  Company Number: FR-BRISTOL-MYERS SQUIBB COMPANY-14698633

PATIENT
  Age: 21 Year
  Sex: Female

DRUGS (2)
  1. ABILIFY [Suspect]
     Route: 048
     Dates: start: 20090512, end: 20090630
  2. LEVOTHYROX [Concomitant]
     Dates: start: 20070101

REACTIONS (1)
  - BLOOD THYROID STIMULATING HORMONE INCREASED [None]
